FAERS Safety Report 12252461 (Version 1)
Quarter: 2016Q2

REPORT INFORMATION
  Report Type: Spontaneous
  Country: US (occurrence: None)
  Receive Date: 20160408
  Receipt Date: 20160408
  Transmission Date: 20160815
  Serious: Yes (Hospitalization)
  Sender: FDA-Public Use
  Company Number: None

PATIENT
  Sex: Female

DRUGS (8)
  1. RANITIDINE. [Concomitant]
     Active Substance: RANITIDINE
  2. ZONISAMIDE. [Concomitant]
     Active Substance: ZONISAMIDE
  3. HYDROCO/APAP [Concomitant]
     Active Substance: ACETAMINOPHEN\HYDROCODONE
  4. PROVAIR [Concomitant]
  5. ONDANSETR [Concomitant]
  6. VITAMIN D [Concomitant]
     Active Substance: CHOLECALCIFEROL
  7. JADENU [Suspect]
     Active Substance: DEFERASIROX
     Indication: SICKLE CELL ANAEMIA
     Route: 048
     Dates: start: 20160213
  8. PEN VK [Concomitant]
     Active Substance: PENICILLIN V POTASSIUM

REACTIONS (3)
  - Therapy cessation [None]
  - Hospitalisation [None]
  - Malaise [None]

NARRATIVE: CASE EVENT DATE: 2016
